FAERS Safety Report 9070294 (Version 3)
Quarter: 2014Q4

REPORT INFORMATION
  Report Type: Spontaneous
  Country: US (occurrence: US)
  Receive Date: 20130215
  Receipt Date: 20141217
  Transmission Date: 20150529
  Serious: Yes (Hospitalization)
  Sender: FDA-Public Use
  Company Number: US-BAYER-2013-019606

PATIENT
  Age: 18 Year
  Sex: Female
  Weight: 68.27 kg

DRUGS (8)
  1. YASMIN [Suspect]
     Active Substance: DROSPIRENONE\ETHINYL ESTRADIOL
     Indication: CONTRACEPTION
     Dosage: UNK
     Dates: start: 201110, end: 201111
  2. LANTUS [Concomitant]
     Active Substance: INSULIN GLARGINE
     Indication: TYPE 1 DIABETES MELLITUS
     Dosage: 90 UNITS AT BED TIME
     Route: 058
     Dates: start: 20040906
  3. HUMALOG [Concomitant]
     Active Substance: INSULIN LISPRO
     Indication: TYPE 1 DIABETES MELLITUS
     Dosage: UNK
  4. LISINOPRIL. [Concomitant]
     Active Substance: LISINOPRIL
     Dosage: 5 MG, UNK
     Route: 048
     Dates: start: 20101012, end: 20120124
  5. PROMETHAZINE HYDROCHLORIDE. [Concomitant]
     Active Substance: PROMETHAZINE HYDROCHLORIDE
     Dosage: 25 MG, UNK
     Route: 048
     Dates: start: 20111116
  6. INSULIN [Concomitant]
     Active Substance: INSULIN NOS
     Indication: DIABETES MELLITUS
     Dosage: DAILY
     Route: 058
     Dates: start: 201207
  7. OCELLA [Suspect]
     Active Substance: DROSPIRENONE\ETHINYL ESTRADIOL
     Indication: CONTRACEPTION
     Dosage: UNK
     Dates: start: 201202, end: 20120816
  8. HUMALOG [Concomitant]
     Active Substance: INSULIN LISPRO
     Indication: TYPE 1 DIABETES MELLITUS
     Dosage: 3 UNITS - SLIDING SCALE
     Route: 058
     Dates: start: 20040906

REACTIONS (4)
  - Painful respiration [None]
  - Pulmonary embolism [None]
  - Injury [None]
  - Dyspnoea [None]

NARRATIVE: CASE EVENT DATE: 20120816
